FAERS Safety Report 9314539 (Version 2)
Quarter: 2013Q2

REPORT INFORMATION
  Report Type: Spontaneous
  Country: DE (occurrence: None)
  Receive Date: 20130524
  Receipt Date: 20130613
  Transmission Date: 20140414
  Serious: Yes (Disabling)
  Sender: FDA-Public Use
  Company Number: 1305-665

PATIENT
  Age: 80 Year
  Sex: Female

DRUGS (6)
  1. EYLEA [Suspect]
     Indication: AGE-RELATED MACULAR DEGENERATION
     Dates: end: 20130416
  2. MARCOUMAR (PHENPROCOUMON) [Concomitant]
  3. LUCENTIS (RANIBIZUMAB) [Concomitant]
  4. POVIDONE IODINE (PROVIDONE IODINE) [Concomitant]
  5. VISCOTEARS (CARBOMER) [Concomitant]
  6. TOBREX (TOBRAMYCIN) [Concomitant]

REACTIONS (3)
  - Pseudoendophthalmitis [None]
  - Visual acuity reduced [None]
  - Vitreous haemorrhage [None]
